FAERS Safety Report 4303164-3 (Version None)
Quarter: 2004Q1

REPORT INFORMATION
  Report Type: 
  Country: None (occurrence: None)
  Receive Date: 20040126
  Receipt Date: 20030925
  Transmission Date: 20041129
  Serious: No
  Sender: FDA-Public Use
  Company Number: USA030948337

PATIENT
  Age: 8 Year
  Sex: Male

DRUGS (1)
  1. STRATTERA [Suspect]
     Dosage: 40MG/IN THE MORNING
     Dates: start: 20030801

REACTIONS (4)
  - ABDOMINAL PAIN [None]
  - ABNORMAL BEHAVIOUR [None]
  - DRUG EFFECT DECREASED [None]
  - VOMITING [None]
